FAERS Safety Report 5804800-2 (Version None)
Quarter: 2008Q3

REPORT INFORMATION
  Report Type: 
  Country: None (occurrence: None)
  Receive Date: 20080707
  Receipt Date: 20080319
  Transmission Date: 20090109
  Serious: Yes (Congenital Anomaly)
  Sender: FDA-Public Use
  Company Number: 554735

PATIENT
  Sex: Female
  Weight: 4.4 kg

DRUGS (2)
  1. MYCOPHENOLATE MOFETIL [Suspect]
     Indication: LUPUS NEPHRITIS
     Dosage: 500 MG 2 PER DAY TRANSPLACENTAL
     Route: 064
  2. ADALIMUMAB (ADALIMUMAB) [Concomitant]

REACTIONS (7)
  - CLEFT PALATE [None]
  - DEVELOPMENTAL DELAY [None]
  - DYSMORPHISM [None]
  - EXTERNAL AUDITORY CANAL ATRESIA [None]
  - LIMB MALFORMATION [None]
  - MICROTIA [None]
  - TRACHEOMALACIA [None]
